FAERS Safety Report 13231275 (Version 2)
Quarter: 2017Q1

REPORT INFORMATION
  Report Type: Spontaneous
  Country: US (occurrence: US)
  Receive Date: 20170214
  Receipt Date: 20170324
  Transmission Date: 20170428
  Serious: No
  Sender: FDA-Public Use
  Company Number: US-009507513-1701USA007930

PATIENT
  Age: 18 Year
  Sex: Female
  Weight: 63 kg

DRUGS (2)
  1. NEXPLANON [Suspect]
     Active Substance: ETONOGESTREL
     Indication: CONTRACEPTION
  2. NEXPLANON [Suspect]
     Active Substance: ETONOGESTREL
     Indication: MENSTRUATION IRREGULAR
     Dosage: 1 DF/3 YEARS
     Route: 059
     Dates: start: 20160419, end: 20170110

REACTIONS (3)
  - Product use issue [Unknown]
  - Incorrect drug administration duration [Unknown]
  - Implant site reaction [Recovered/Resolved]

NARRATIVE: CASE EVENT DATE: 201701
